FAERS Safety Report 5218984-0 (Version None)
Quarter: 2007Q1

REPORT INFORMATION
  Report Type: 
  Country: None (occurrence: None)
  Receive Date: 20070125
  Receipt Date: 20070115
  Transmission Date: 20070707
  Serious: Yes (Other)
  Sender: FDA-Public Use
  Company Number: ES-JNJFOC-20070103478

PATIENT
  Age: 76 Year
  Sex: Female

DRUGS (5)
  1. REMICADE [Suspect]
     Dosage: 3MG/KG. 3RD INFUSION
     Route: 042
  2. REMICADE [Suspect]
     Dosage: 3MG/KG. 2ND INFUSION
     Route: 042
  3. REMICADE [Suspect]
     Indication: RHEUMATOID ARTHRITIS
     Dosage: 3MG/KG. 1ST INFUSION
     Route: 042
  4. HYDROXYCHLOROQUINE SULFATE [Suspect]
     Indication: DRUG USE FOR UNKNOWN INDICATION
     Route: 048
  5. METHOTREXATE [Concomitant]
     Route: 065

REACTIONS (8)
  - ANAEMIA [None]
  - ASTHENIA [None]
  - COUGH [None]
  - FACIAL PALSY [None]
  - INFLUENZA LIKE ILLNESS [None]
  - MUSCLE ENZYME INCREASED [None]
  - MYOPATHY [None]
  - PYREXIA [None]
